FAERS Safety Report 5246719-4 (Version None)
Quarter: 2007Q1

REPORT INFORMATION
  Report Type: 
  Country: None (occurrence: None)
  Receive Date: 20070226
  Receipt Date: 20070212
  Transmission Date: 20070707
  Serious: Yes (Other)
  Sender: FDA-Public Use
  Company Number: AU-AMGEN-US210793

PATIENT
  Age: 57 Year
  Sex: Male

DRUGS (10)
  1. NEUPOGEN [Suspect]
     Indication: PRE-EXISTING DISEASE
     Route: 065
  2. PERHEXILINE MALEATE [Concomitant]
     Route: 065
  3. CLOPIDOGREL [Concomitant]
     Route: 065
  4. ATORVASTATIN [Concomitant]
     Route: 065
  5. EZETIMIBE [Concomitant]
     Route: 065
  6. RAMIPRIL [Concomitant]
     Route: 065
  7. BISOPROLOL FUMARATE [Concomitant]
     Route: 065
  8. FISH OIL [Concomitant]
     Route: 065
  9. PIROXICAM [Concomitant]
     Route: 065
  10. GLYCERYL TRINITRATE [Concomitant]
     Route: 065

REACTIONS (1)
  - THROMBOCYTOPENIA [None]
